FAERS Safety Report 21363650 (Version 2)
Quarter: 2022Q4

REPORT INFORMATION
  Report Type: Spontaneous
  Country: US (occurrence: US)
  Receive Date: 20220922
  Receipt Date: 20221003
  Transmission Date: 20230112
  Serious: Yes (Hospitalization, Other)
  Sender: FDA-Public Use
  Company Number: US-MLMSERVICE-20220906-3780871-1

PATIENT
  Age: 9 Year
  Sex: Male

DRUGS (1)
  1. MOMETASONE FUROATE [Suspect]
     Active Substance: MOMETASONE FUROATE
     Indication: Rosacea
     Dosage: UNK, OD
     Route: 061

REACTIONS (5)
  - Superinfection bacterial [Recovering/Resolving]
  - Demodicidosis [Recovering/Resolving]
  - Corynebacterium infection [Recovering/Resolving]
  - Incorrect product administration duration [Unknown]
  - Dermatitis acneiform [Recovering/Resolving]
